FAERS Safety Report 11032283 (Version 2)
Quarter: 2015Q2

REPORT INFORMATION
  Report Type: Spontaneous
  Country: JP (occurrence: JP)
  Receive Date: 20150415
  Receipt Date: 20150430
  Transmission Date: 20150821
  Serious: Yes (Other)
  Sender: FDA-Public Use
  Company Number: JP-PFIZER INC-2015124982

PATIENT
  Age: 80 Year
  Sex: Male

DRUGS (2)
  1. ZITHROMAC [Suspect]
     Active Substance: AZITHROMYCIN DIHYDRATE
     Indication: INTERSTITIAL LUNG DISEASE
     Dosage: 500 MG, DAILY
  2. MEROPEN [Concomitant]
     Active Substance: MEROPENEM
     Indication: INTERSTITIAL LUNG DISEASE
     Dosage: 1 G, DAILY

REACTIONS (3)
  - Blood beta-D-glucan increased [Unknown]
  - Pneumocystis jirovecii pneumonia [Unknown]
  - Renal failure [Unknown]
